FAERS Safety Report 7655625-7 (Version None)
Quarter: 2011Q3

REPORT INFORMATION
  Report Type: 
  Country: None (occurrence: None)
  Receive Date: 20110729
  Receipt Date: 20110714
  Transmission Date: 20111222
  Serious: Yes (Other)
  Sender: FDA-Public Use
  Company Number: AUR-APL-2011-03547

PATIENT
  Age: 44 Year
  Sex: Male
  Weight: 74.4 kg

DRUGS (7)
  1. FERROUS SULFATE TAB [Concomitant]
  2. HYOSCINE HYDROBROMIDE (HYSOCINE HYDROBROMIDE) [Concomitant]
  3. HYOSCINE HBR HYT [Suspect]
     Indication: IRRITABLE BOWEL SYNDROME
     Dosage: 10 MG, ORAL
     Route: 048
  4. RISPERIDONE [Suspect]
     Indication: PRODUCT USED FOR UNKNOWN INDICATION
  5. CLOZARIL [Suspect]
     Indication: SCHIZOPHRENIA
     Dosage: 400 MG, ORAL; 400 MG, ORAL
     Route: 048
     Dates: end: 20110520
  6. CLOZARIL [Suspect]
     Indication: SCHIZOPHRENIA
     Dosage: 400 MG, ORAL; 400 MG, ORAL
     Route: 048
     Dates: start: 20100809, end: 20110520
  7. SERTRALINE HYDROCHLORIDE [Concomitant]

REACTIONS (3)
  - NEUTROPENIA [None]
  - GENERAL PHYSICAL HEALTH DETERIORATION [None]
  - WHITE BLOOD CELL COUNT DECREASED [None]
